FAERS Safety Report 21962726 (Version 1)
Quarter: 2023Q1

REPORT INFORMATION
  Report Type: Other
  Country: None (occurrence: AU)
  Receive Date: 20230207
  Receipt Date: 20230207
  Transmission Date: 20230418
  Serious: Yes (Hospitalization, Other)
  Sender: FDA-Public Use
  Company Number: AU-Spectra Medical Devices, LLC-2137619

PATIENT
  Age: 48 Year
  Sex: Male

DRUGS (1)
  1. LIDOCAINE HYDROCHLORIDE ANHYDROUS [Suspect]
     Active Substance: LIDOCAINE HYDROCHLORIDE ANHYDROUS
     Indication: Analgesic therapy
     Route: 061

REACTIONS (5)
  - Neurotoxicity [Recovering/Resolving]
  - Electrocardiogram QRS complex abnormal [Recovering/Resolving]
  - Local anaesthetic systemic toxicity [Recovering/Resolving]
  - Overdose [Unknown]
  - Intentional product misuse [Unknown]
